FAERS Safety Report 4667037-9 (Version None)
Quarter: 2005Q2

REPORT INFORMATION
  Report Type: 
  Country: None (occurrence: None)
  Receive Date: 20050520
  Receipt Date: 20040907
  Transmission Date: 20051028
  Serious: Yes (Other)
  Sender: FDA-Public Use
  Company Number: PHEH2004US09604

PATIENT
  Age: 85 Year
  Sex: Male

DRUGS (19)
  1. LOVENOX [Concomitant]
     Indication: ANTICOAGULANT THERAPY
     Dosage: 4-6MG Q1-2WKS
     Dates: start: 20031111
  2. ARANESP [Concomitant]
     Indication: ANAEMIA
     Dosage: 200 MG, PRN
     Dates: start: 20020401
  3. ESTINYL [Concomitant]
     Dosage: 1 MG, UNK
  4. ANDROGEL [Concomitant]
     Indication: HORMONE LEVEL ABNORMAL
     Dosage: 15 G, TID
     Route: 061
     Dates: start: 19980101, end: 20030701
  5. AVODART [Concomitant]
     Indication: HYPERTENSION
     Dosage: .5 UNK, QD
     Dates: start: 20040723
  6. PROSCAR [Concomitant]
     Indication: PROSTATE CANCER
     Dosage: 5 MG, QD
     Dates: start: 19970101
  7. FLORINETOL [Concomitant]
  8. BEXTRA [Concomitant]
     Dosage: 20 UNK, QD
  9. PREVACID [Concomitant]
     Dosage: 30 UNK, UNK
  10. SYNTHROID [Concomitant]
     Indication: HYPOTHYROIDISM
     Dosage: .05 MG, QD
  11. TOPROL-XL [Concomitant]
     Dosage: 150 MG, UNK
  12. FUROSEMIDE [Concomitant]
     Indication: HYPERTENSION
     Dosage: 40 MG, UNK
  13. ALDACTONE [Concomitant]
     Indication: HYPERTENSION
     Dosage: UNK, QD
  14. PLAVIX [Concomitant]
     Dosage: 75 MG, UNK
  15. LUPRON [Concomitant]
     Indication: PROSTATE CANCER
  16. ZOLADEX [Concomitant]
     Indication: PROSTATE CANCER
     Dates: start: 19960101, end: 19970101
  17. FLUTAMIDE [Concomitant]
     Indication: PROSTATE CANCER
     Dates: start: 19960101, end: 19970101
  18. AREDIA [Suspect]
     Dosage: 90 MG, QMO
     Dates: start: 19970101, end: 20040201
  19. AREDIA [Suspect]
     Dosage: 90MG Q3MOS
     Dates: start: 20040301

REACTIONS (4)
  - JAW DISORDER [None]
  - OSTEONECROSIS [None]
  - TOOTH EXTRACTION [None]
  - WOUND DEBRIDEMENT [None]
